FAERS Safety Report 6856202-8 (Version None)
Quarter: 2010Q3

REPORT INFORMATION
  Report Type: 
  Country: None (occurrence: None)
  Receive Date: 20100719
  Receipt Date: 20100709
  Transmission Date: 20110219
  Serious: Yes (Hospitalization)
  Sender: FDA-Public Use
  Company Number: IT-ASTRAZENECA-2010SE32083

PATIENT
  Age: 32270 Day
  Sex: Female

DRUGS (4)
  1. RATACAND [Suspect]
     Indication: HYPERTENSION
     Route: 048
     Dates: start: 20100516, end: 20100620
  2. SPIROFUR [Suspect]
     Indication: HYPERTENSION
     Route: 048
     Dates: start: 20100529, end: 20100620
  3. ASPIRIN [Concomitant]
     Route: 048
     Dates: start: 20080620
  4. TRINITRINA [Concomitant]
     Route: 048

REACTIONS (5)
  - DROP ATTACKS [None]
  - DYSSTASIA [None]
  - HYPERKALAEMIA [None]
  - RENAL FAILURE [None]
  - SOMNOLENCE [None]
